FAERS Safety Report 17162538 (Version 1)
Quarter: 2019Q4

REPORT INFORMATION
  Report Type: Spontaneous
  Country: GB (occurrence: GB)
  Receive Date: 20191217
  Receipt Date: 20191217
  Transmission Date: 20200122
  Serious: Yes (Other)
  Sender: FDA-Public Use
  Company Number: GB-TEVA-2019-GB-1153022

PATIENT
  Sex: Male

DRUGS (1)
  1. CLONAZEPAM 500MCG [Suspect]
     Active Substance: CLONAZEPAM
     Dosage: 500 MICROGRAM DAILY; HALF A TABLET IN THE MORNING AND HALF A TABLET IN THE EVENING
     Route: 065
     Dates: start: 20190807

REACTIONS (9)
  - Drug dependence [Unknown]
  - Drug tolerance [Unknown]
  - Abulia [Unknown]
  - Anxiety [Unknown]
  - Cognitive disorder [Unknown]
  - Panic reaction [Unknown]
  - Fear [Unknown]
  - Mental impairment [Unknown]
  - Palpitations [Unknown]

NARRATIVE: CASE EVENT DATE: 2019
